FAERS Safety Report 4995890-8 (Version None)
Quarter: 2006Q2

REPORT INFORMATION
  Report Type: 
  Country: None (occurrence: None)
  Receive Date: 20060508
  Receipt Date: 20050930
  Transmission Date: 20061013
  Serious: Yes (Hospitalization, Disabling)
  Sender: FDA-Public Use
  Company Number: US-MERCK-0510USA01407

PATIENT
  Age: 52 Year
  Sex: Female
  Weight: 79 kg

DRUGS (6)
  1. VIOXX [Suspect]
     Indication: BACK PAIN
     Route: 048
     Dates: start: 19991221, end: 20040301
  2. VIOXX [Suspect]
     Route: 048
     Dates: end: 20040301
  3. VIOXX [Suspect]
     Route: 048
     Dates: start: 20000907
  4. VIOXX [Suspect]
     Indication: OSTEOARTHRITIS
     Route: 048
     Dates: start: 19991221, end: 20040301
  5. VIOXX [Suspect]
     Route: 048
     Dates: end: 20040301
  6. VIOXX [Suspect]
     Route: 048
     Dates: start: 20000907

REACTIONS (15)
  - ASTHMA [None]
  - BLINDNESS UNILATERAL [None]
  - BRONCHITIS [None]
  - CARDIAC DISORDER [None]
  - CARDIOVASCULAR DISORDER [None]
  - CEREBROVASCULAR ACCIDENT [None]
  - CHEST PAIN [None]
  - HEMIPARESIS [None]
  - HYPERLIPIDAEMIA [None]
  - HYPOAESTHESIA [None]
  - MUSCULOSKELETAL CHEST PAIN [None]
  - MYOCARDIAL INFARCTION [None]
  - PULMONARY EMBOLISM [None]
  - TRANSIENT ISCHAEMIC ATTACK [None]
  - VISION BLURRED [None]
